FAERS Safety Report 24743000 (Version 1)
Quarter: 2024Q4

REPORT INFORMATION
  Report Type: Spontaneous
  Country: US (occurrence: None)
  Receive Date: 20241215
  Receipt Date: 20241215
  Transmission Date: 20250115
  Serious: Yes (Other)
  Sender: Public
  Company Number: None

PATIENT
  Age: 66 Year
  Sex: Male
  Weight: 83.25 kg

DRUGS (1)
  1. MOTEGRITY [Suspect]
     Active Substance: PRUCALOPRIDE SUCCINATE
     Indication: Constipation
     Dosage: OTHER QUANTITY : 1 TABLET(S);?FREQUENCY : AT BEDTIME;?
     Route: 048
     Dates: start: 20241213, end: 20241215

REACTIONS (6)
  - Abdominal pain upper [None]
  - Dizziness [None]
  - Nausea [None]
  - Abdominal pain lower [None]
  - Somnolence [None]
  - Brain fog [None]

NARRATIVE: CASE EVENT DATE: 20241215
